FAERS Safety Report 10953434 (Version 1)
Quarter: 2015Q1

REPORT INFORMATION
  Report Type: Spontaneous
  Country: US (occurrence: US)
  Receive Date: 20150325
  Receipt Date: 20150325
  Transmission Date: 20150721
  Serious: No
  Sender: FDA-Public Use
  Company Number: US-ELI_LILLY_AND_COMPANY-US201502007880

PATIENT
  Sex: Female

DRUGS (4)
  1. OLANZAPINE. [Suspect]
     Active Substance: OLANZAPINE
     Indication: PSYCHOTIC DISORDER
     Dosage: 10 MG, QD
     Route: 065
     Dates: start: 20150204
  2. OLANZAPINE. [Suspect]
     Active Substance: OLANZAPINE
     Dosage: 15.5 MG, EACH MORNING
     Route: 065
  3. OLANZAPINE. [Suspect]
     Active Substance: OLANZAPINE
     Dosage: 20 MG, QD
     Route: 065
  4. ABILIFY [Concomitant]
     Active Substance: ARIPIPRAZOLE
     Dosage: UNK, UNKNOWN
     Route: 065

REACTIONS (8)
  - Poor quality sleep [Unknown]
  - Coordination abnormal [Unknown]
  - Feeding disorder [Unknown]
  - Posture abnormal [Unknown]
  - Lack of spontaneous speech [Unknown]
  - Prescribed overdose [Unknown]
  - Blunted affect [Unknown]
  - Asthenia [Unknown]
